FAERS Safety Report 5469587-4 (Version None)
Quarter: 2007Q3

REPORT INFORMATION
  Report Type: 
  Country: None (occurrence: None)
  Receive Date: 20070927
  Receipt Date: 20070925
  Transmission Date: 20080115
  Serious: Yes (Other)
  Sender: FDA-Public Use
  Company Number: TR-AVENTIS-200718789GDDC

PATIENT
  Age: 57 Year
  Sex: Male
  Weight: 90 kg

DRUGS (4)
  1. LANTUS [Suspect]
     Route: 058
     Dates: start: 20070226
  2. AUTOPEN INSULIN INJECTION PEN [Suspect]
  3. METFORMIN [Concomitant]
     Dosage: DOSE: 850 MG TWICE AFTER MEALS
     Route: 048
     Dates: start: 20070226
  4. GLIMAX [Concomitant]
     Dosage: DOSE QUANTITY: 1; FREQUENCY: BEFORE MEALS
     Route: 048
     Dates: start: 20070226

REACTIONS (3)
  - BLOOD PRESSURE INCREASED [None]
  - FATIGUE [None]
  - HYPERHIDROSIS [None]
